FAERS Safety Report 9058997 (Version 1)
Quarter: 2013Q1

REPORT INFORMATION
  Report Type: Spontaneous
  Country: US (occurrence: US)
  Receive Date: 20130211
  Receipt Date: 20130211
  Transmission Date: 20140127
  Serious: No
  Sender: FDA-Public Use
  Company Number: US-BRISTOL-MYERS SQUIBB COMPANY-16505091

PATIENT
  Age: 72 Year
  Sex: Female

DRUGS (1)
  1. METFORMIN HCL TABS 500MG [Suspect]
     Indication: DIABETES MELLITUS
     Dosage: STARTED:6MONTHS AGO
     Route: 048
     Dates: end: 201203

REACTIONS (1)
  - Diarrhoea [Not Recovered/Not Resolved]
